FAERS Safety Report 5116907-6 (Version None)
Quarter: 2006Q3

REPORT INFORMATION
  Report Type: 
  Country: None (occurrence: None)
  Receive Date: 20060925
  Receipt Date: 20060829
  Transmission Date: 20061208
  Serious: Yes (Hospitalization)
  Sender: FDA-Public Use
  Company Number: CHNY2006JP02566

PATIENT
  Age: 60 Year
  Sex: Male

DRUGS (1)
  1. NICOTINE [Suspect]
     Indication: SMOKING CESSATION THERAPY
     Dosage: TRANSDERMAL
     Route: 062

REACTIONS (3)
  - APPLICATION SITE DISCOLOURATION [None]
  - DERMATITIS CONTACT [None]
  - WEIGHT INCREASED [None]
